FAERS Safety Report 10387600 (Version 4)
Quarter: 2015Q1

REPORT INFORMATION
  Report Type: Report from Study
  Country: JP (occurrence: JP)
  Receive Date: 20140815
  Receipt Date: 20150129
  Transmission Date: 20150720
  Serious: Yes (Hospitalization)
  Sender: FDA-Public Use
  Company Number: JP-PFIZER INC-2014224416

PATIENT
  Age: 46 Year
  Sex: Female
  Weight: 46.8 kg

DRUGS (15)
  1. NOVAMIN [Concomitant]
     Active Substance: PROCHLORPERAZINE MALEATE
     Dosage: 5 MG, 2X/DAY
     Route: 048
     Dates: start: 20140526
  2. DENOTAS CHEWABLE [Concomitant]
     Active Substance: CALCIUM CARBONATE\CHOLECALCIFEROL\MAGNESIUM CARBONATE
     Dosage: 2 DF, 1X/DAY
     Route: 048
  3. JZOLOFT [Concomitant]
     Active Substance: SERTRALINE HYDROCHLORIDE
     Dosage: 25 MG, 1X/DAY
     Route: 048
  4. DECADRON [Concomitant]
     Active Substance: DEXAMETHASONE
     Dosage: 0.5 MG, 1X/DAY
     Route: 048
     Dates: end: 20140613
  5. ZOPICLONE [Concomitant]
     Active Substance: ZOPICLONE
     Dosage: 7.5 MG, 1X/DAY
     Route: 048
  6. ATARAX [Concomitant]
     Active Substance: HYDROXYZINE\HYDROXYZINE HYDROCHLORIDE
     Dosage: 10 MG, 1X/DAY
     Route: 048
     Dates: end: 20140601
  7. RABEPRAZOLE NA [Concomitant]
     Dosage: 10 MG, 1X/DAY
     Route: 048
  8. XALKORI [Suspect]
     Active Substance: CRIZOTINIB
     Indication: NON-SMALL CELL LUNG CANCER
     Dosage: 250 MG, 2X/DAY
     Route: 048
     Dates: start: 20140521, end: 20140617
  9. LYRICA [Concomitant]
     Active Substance: PREGABALIN
     Dosage: 75 MG, 2X/DAY
     Route: 048
  10. OXINORM [Concomitant]
     Active Substance: OXYCODONE HYDROCHLORIDE
     Dosage: 2.5 MG, AS NEEDED
     Route: 048
  11. DEPAS [Concomitant]
     Active Substance: ETIZOLAM
     Dosage: 0.5 MG, 4X/DAY
     Route: 048
  12. METHYCOBAL [Concomitant]
     Active Substance: METHYLCOBALAMIN
     Dosage: 500 UG, 3X/DAY
     Route: 048
  13. OXYCONTIN [Concomitant]
     Active Substance: OXYCODONE HYDROCHLORIDE
     Dosage: 5 MG, 2X/DAY
     Route: 048
  14. MAG-LAX [Concomitant]
     Active Substance: MAGNESIUM HYDROXIDE\PARAFFIN
     Dosage: 330 MG, 3X/DAY
     Route: 048
     Dates: start: 20140613
  15. LOXONIN [Concomitant]
     Active Substance: LOXOPROFEN SODIUM
     Dosage: 60 MG, AS NEEDED
     Route: 048

REACTIONS (2)
  - Hypoxia [Recovered/Resolved]
  - Pulmonary oedema [Recovering/Resolving]

NARRATIVE: CASE EVENT DATE: 20140617
